FAERS Safety Report 19428311 (Version 1)
Quarter: 2021Q2

REPORT INFORMATION
  Report Type: Report from Study
  Country: ES (occurrence: ES)
  Receive Date: 20210617
  Receipt Date: 20210617
  Transmission Date: 20210717
  Serious: Yes (Life-Threatening, Hospitalization, Other)
  Sender: FDA-Public Use
  Company Number: ES-INCYTE CORPORATION-2021IN005380

PATIENT

DRUGS (5)
  1. ALLOPURINOL SODIUM. [Concomitant]
     Active Substance: ALLOPURINOL SODIUM
     Indication: PRODUCT USED FOR UNKNOWN INDICATION
     Dosage: 100 MG, QD
     Route: 065
     Dates: start: 2019
  2. JAKAVI [Suspect]
     Active Substance: RUXOLITINIB
     Dosage: 10 MG, QD (5 MG,2 IN 1 D)
     Route: 048
     Dates: start: 20210215, end: 20210509
  3. JAKAVI [Suspect]
     Active Substance: RUXOLITINIB
     Dosage: 20 MG, QD (10 MG,2 IN 1 D)
     Route: 048
     Dates: start: 20210125, end: 20210214
  4. CELECOXIB;LIDOCAINE HYDROCHLORIDE;MENTHOL [Concomitant]
     Active Substance: CELECOXIB\LIDOCAINE\MENTHOL
     Indication: PAIN
     Dosage: 200 MG (AS REQUIRED)
     Route: 065
     Dates: start: 2019
  5. JAKAVI [Suspect]
     Active Substance: RUXOLITINIB
     Indication: PRODUCT USED FOR UNKNOWN INDICATION
     Dosage: 30 MG, QD (15 MG,2 IN 1 D)
     Route: 048
     Dates: start: 20210118, end: 20210124

REACTIONS (1)
  - Subdural haematoma [Not Recovered/Not Resolved]

NARRATIVE: CASE EVENT DATE: 20210510
